FAERS Safety Report 24685480 (Version 1)
Quarter: 2024Q4

REPORT INFORMATION
  Report Type: Spontaneous
  Country: US (occurrence: None)
  Receive Date: 20241127
  Receipt Date: 20241127
  Transmission Date: 20250115
  Serious: Yes (Other)
  Sender: Public
  Company Number: None

PATIENT
  Age: 69 Year
  Sex: Female

DRUGS (1)
  1. INLYTA [Suspect]
     Active Substance: AXITINIB
     Indication: Renal cancer
     Dosage: 3MG BID ORAL
     Route: 048

REACTIONS (7)
  - Fall [None]
  - Wrist fracture [None]
  - Pain [None]
  - Nausea [None]
  - Oral pain [None]
  - Hypothyroidism [None]
  - Hypertension [None]
